FAERS Safety Report 7349808-3 (Version None)
Quarter: 2011Q1

REPORT INFORMATION
  Report Type: 
  Country: None (occurrence: None)
  Receive Date: 20110314
  Receipt Date: 20110303
  Transmission Date: 20110831
  Serious: Yes (Hospitalization, Other)
  Sender: FDA-Public Use
  Company Number: US-ROCHE-467351

PATIENT
  Sex: Male
  Weight: 86.2 kg

DRUGS (2)
  1. ACCUTANE [Suspect]
     Dosage: DOSAGE REGIMEN REPORTED AS 40-80 MG.
     Route: 048
     Dates: start: 19980515, end: 19980915
  2. PREDNISONE [Concomitant]
     Route: 048
     Dates: start: 19980731

REACTIONS (17)
  - INFLAMMATORY BOWEL DISEASE [None]
  - COLITIS ULCERATIVE [None]
  - PEPTIC ULCER [None]
  - POST GASTRIC SURGERY SYNDROME [None]
  - DERMATITIS CONTACT [None]
  - VITAMIN B12 DEFICIENCY [None]
  - HAEMORRHOIDS [None]
  - SEPSIS [None]
  - GASTROENTERITIS [None]
  - GASTROENTERITIS VIRAL [None]
  - LIP PAIN [None]
  - ACNE [None]
  - CROHN'S DISEASE [None]
  - ILEAL PERFORATION [None]
  - MOOD SWINGS [None]
  - GASTROOESOPHAGEAL REFLUX DISEASE [None]
  - EPISTAXIS [None]
